FAERS Safety Report 7058357-1 (Version None)
Quarter: 2010Q4

REPORT INFORMATION
  Report Type: 
  Country: None (occurrence: None)
  Receive Date: 20101022
  Receipt Date: 20101008
  Transmission Date: 20110411
  Serious: Yes (Other)
  Sender: FDA-Public Use
  Company Number: US-PFIZER INC-2010129012

PATIENT
  Sex: Male
  Weight: 61.224 kg

DRUGS (1)
  1. VIAGRA [Suspect]
     Indication: ERECTILE DYSFUNCTION
     Dosage: UNK, AS NEEDED
     Route: 048
     Dates: start: 20101001, end: 20101001

REACTIONS (2)
  - INTENTIONAL DRUG MISUSE [None]
  - VISION BLURRED [None]
